FAERS Safety Report 24027036 (Version 1)
Quarter: 2024Q2

REPORT INFORMATION
  Report Type: Report from Study
  Country: US (occurrence: US)
  Receive Date: 20240628
  Receipt Date: 20240628
  Transmission Date: 20240716
  Serious: Yes (Death, Other)
  Sender: FDA-Public Use
  Company Number: US-AUROBINDO-AUR-APL-2024-030954

PATIENT
  Age: 31 Year
  Sex: Male

DRUGS (12)
  1. CAPECITABINE [Suspect]
     Active Substance: CAPECITABINE
     Indication: Colorectal cancer
     Dosage: UNK
     Route: 065
  2. FLUOROURACIL [Suspect]
     Active Substance: FLUOROURACIL
     Indication: Hyperthermic chemotherapy
     Dosage: 400 MILLIGRAM/SQ. METER
     Route: 042
  3. IRINOTECAN HYDROCHLORIDE [Suspect]
     Active Substance: IRINOTECAN HYDROCHLORIDE
     Indication: Colorectal cancer
     Dosage: UNK
     Route: 065
  4. OXALIPLATIN [Suspect]
     Active Substance: OXALIPLATIN
     Indication: Colorectal cancer
     Dosage: UNK
     Route: 065
  5. DOXORUBICIN [Suspect]
     Active Substance: DOXORUBICIN
     Indication: Hyperthermic chemotherapy
     Dosage: 15 MILLIGRAM/SQ. METER
     Route: 065
  6. DOXORUBICIN [Suspect]
     Active Substance: DOXORUBICIN
     Indication: Colorectal cancer
  7. MITOMYCIN [Suspect]
     Active Substance: MITOMYCIN
     Indication: Hyperthermic chemotherapy
     Dosage: 15 MILLIGRAM/SQ. METER
     Route: 065
  8. MITOMYCIN [Suspect]
     Active Substance: MITOMYCIN
     Indication: Colorectal cancer
  9. DEXTROSE [Suspect]
     Active Substance: DEXTROSE\DEXTROSE MONOHYDRATE
     Indication: Hyperthermic chemotherapy
     Dosage: UNK
     Route: 065
  10. DEXTROSE [Suspect]
     Active Substance: DEXTROSE\DEXTROSE MONOHYDRATE
     Indication: Colorectal cancer
  11. LEUCOVORIN [Suspect]
     Active Substance: LEUCOVORIN\LEUCOVORIN CALCIUM
     Indication: Hyperthermic chemotherapy
     Dosage: 20 MILLIGRAM/SQ. METER
     Route: 040
  12. LEUCOVORIN [Suspect]
     Active Substance: LEUCOVORIN\LEUCOVORIN CALCIUM
     Indication: Colorectal cancer

REACTIONS (2)
  - Drug ineffective [Fatal]
  - Toxicity to various agents [Unknown]
